FAERS Safety Report 8675626 (Version 3)
Quarter: 2013Q1

REPORT INFORMATION
  Report Type: Spontaneous
  Country: FR (occurrence: FR)
  Receive Date: 20120720
  Receipt Date: 20130208
  Transmission Date: 20140127
  Serious: Yes (Death)
  Sender: FDA-Public Use
  Company Number: FR-GLAXOSMITHKLINE-B0813699A

PATIENT
  Age: 15 Year
  Sex: Female

DRUGS (11)
  1. CLAVENTIN [Suspect]
     Indication: BRONCHOPULMONARY ASPERGILLOSIS
     Route: 042
     Dates: start: 20120528, end: 20120601
  2. BACTRIM [Suspect]
     Indication: PROPHYLAXIS
     Dosage: 1UNIT THREE TIMES PER WEEK
     Route: 048
     Dates: start: 20120428
  3. CANCIDAS [Suspect]
     Indication: BRONCHOPULMONARY ASPERGILLOSIS
     Route: 042
     Dates: start: 20120528, end: 20120530
  4. CIPROFLOXACINE [Suspect]
     Indication: PRODUCT USED FOR UNKNOWN INDICATION
     Dates: start: 20120528, end: 20120604
  5. VFEND [Suspect]
     Indication: BRONCHOPULMONARY ASPERGILLOSIS
     Dosage: 200MG TWICE PER DAY
     Route: 050
     Dates: start: 20120514, end: 20120531
  6. VANCOMYCIN [Suspect]
     Indication: BRONCHOPULMONARY ASPERGILLOSIS
     Dosage: 1G TWICE PER DAY
     Route: 042
     Dates: start: 20120522
  7. GENTAMYCIN [Suspect]
     Indication: BRONCHOPULMONARY ASPERGILLOSIS
     Route: 042
     Dates: start: 20120526, end: 20120530
  8. NEORAL [Suspect]
     Indication: APLASIA
     Dosage: 100MG TWICE PER DAY
     Route: 048
     Dates: start: 20120423, end: 20120531
  9. NEUPOGEN [Concomitant]
     Indication: PRODUCT USED FOR UNKNOWN INDICATION
     Route: 065
     Dates: start: 201204, end: 20120607
  10. ATGAM [Concomitant]
     Indication: APLASIA
     Dosage: 40MGK PER DAY
     Route: 065
     Dates: start: 20120423, end: 20120427
  11. COLISTINE [Concomitant]
     Indication: ILL-DEFINED DISORDER
     Route: 048

REACTIONS (3)
  - Renal failure acute [Fatal]
  - Oedema peripheral [Unknown]
  - Face oedema [Unknown]
